FAERS Safety Report 5197680-2 (Version None)
Quarter: 2007Q1

REPORT INFORMATION
  Report Type: 
  Country: None (occurrence: None)
  Receive Date: 20070103
  Receipt Date: 20061226
  Transmission Date: 20070707
  Serious: Yes (Other)
  Sender: FDA-Public Use
  Company Number: US-PFIZER INC-2006156160

PATIENT
  Sex: Female
  Weight: 111.1 kg

DRUGS (10)
  1. CHANTIX [Suspect]
     Dates: start: 20061220, end: 20061223
  2. GLUCOPHAGE [Concomitant]
  3. SYNTHROID [Concomitant]
  4. PAXIL [Concomitant]
  5. AVAPRO [Concomitant]
  6. PLAVIX [Concomitant]
  7. ZOCOR [Concomitant]
  8. NEXIUM [Concomitant]
  9. HUMALOG [Concomitant]
  10. LANTUS [Concomitant]

REACTIONS (4)
  - DRY EYE [None]
  - EXCESSIVE EYE BLINKING [None]
  - EYE BURNS [None]
  - FACIAL PALSY [None]
